FAERS Safety Report 18928228 (Version 6)
Quarter: 2021Q4

REPORT INFORMATION
  Report Type: Report from Study
  Country: CA (occurrence: None)
  Receive Date: 20210223
  Receipt Date: 20211105
  Transmission Date: 20220303
  Serious: Yes (Other)
  Sender: FDA-Public Use
  Company Number: 2021A065704

PATIENT
  Age: 40 Year
  Sex: Female

DRUGS (21)
  1. ZOLMITRIPTAN [Suspect]
     Active Substance: ZOLMITRIPTAN
     Indication: Migraine
     Dosage: 1.0DF UNKNOWN
     Route: 058
     Dates: start: 20200423
  2. PROPRANOLOL HYDROCHLORIDE [Suspect]
     Active Substance: PROPRANOLOL HYDROCHLORIDE
     Indication: Migraine
     Dosage: 1 DOSAGE FORM
     Route: 065
     Dates: start: 201911
  3. PROPRANOLOL HYDROCHLORIDE [Suspect]
     Active Substance: PROPRANOLOL HYDROCHLORIDE
     Indication: Migraine
     Dosage: 1 DOSAGE FORM
     Route: 065
  4. LIDOCAINE [Suspect]
     Active Substance: LIDOCAINE
     Indication: Migraine
     Route: 065
  5. ACETAMINOPHEN\CODEINE PHOSPHATE [Suspect]
     Active Substance: ACETAMINOPHEN\CODEINE PHOSPHATE
     Indication: Migraine
     Route: 065
  6. AIMOVIG [Suspect]
     Active Substance: ERENUMAB-AOOE
     Indication: Migraine
     Route: 065
     Dates: start: 20200501
  7. AIMOVIG [Suspect]
     Active Substance: ERENUMAB-AOOE
     Indication: Migraine
     Route: 065
  8. BOTULINUM TOXIN TYPE A [Suspect]
     Active Substance: BOTULINUM TOXIN TYPE A
     Indication: Migraine
     Route: 065
  9. DICLOFENAC POTASSIUM [Suspect]
     Active Substance: DICLOFENAC POTASSIUM
     Indication: Product used for unknown indication
     Route: 065
     Dates: start: 201906, end: 202003
  10. ELAVIL [Suspect]
     Active Substance: AMITRIPTYLINE HYDROCHLORIDE
     Indication: Migraine
     Route: 065
  11. GRAVOL [Suspect]
     Active Substance: DIMENHYDRINATE
     Indication: Migraine
     Route: 065
  12. PROPRANOLOL HYDROCHLORIDE [Suspect]
     Active Substance: PROPRANOLOL HYDROCHLORIDE
     Indication: Migraine
     Dosage: 1.0DF UNKNOWN
     Route: 065
  13. MEFENAMIC ACID [Suspect]
     Active Substance: MEFENAMIC ACID
     Indication: Migraine
     Route: 065
  14. MORPHINE SULFATE [Suspect]
     Active Substance: MORPHINE SULFATE
     Indication: Migraine
     Route: 065
  15. NEURONTIN [Suspect]
     Active Substance: GABAPENTIN
     Indication: Migraine
     Route: 065
  16. NORTRIPTYLINE [Suspect]
     Active Substance: NORTRIPTYLINE
     Indication: Migraine
     Route: 065
  17. PYRIDOXINE\TRYPTOPHAN [Suspect]
     Active Substance: PYRIDOXINE\TRYPTOPHAN
     Indication: Migraine
     Route: 065
     Dates: start: 201908
  18. ERGOCALCIFEROL [Suspect]
     Active Substance: ERGOCALCIFEROL
     Indication: Migraine
     Route: 065
  19. HEXACHLOROPHENE [Suspect]
     Active Substance: HEXACHLOROPHENE
     Indication: Migraine
     Route: 065
  20. TOPIRAMATE [Suspect]
     Active Substance: TOPIRAMATE
     Indication: Migraine
     Route: 048
  21. CYCLOBENZAPRINE HYDROCHLORIDE [Suspect]
     Active Substance: CYCLOBENZAPRINE HYDROCHLORIDE

REACTIONS (20)
  - Dizziness [Unknown]
  - Fatigue [Unknown]
  - Headache [Recovering/Resolving]
  - Myalgia [Unknown]
  - Nausea [Unknown]
  - Discomfort [Unknown]
  - Disturbance in attention [Unknown]
  - Drug intolerance [Unknown]
  - Migraine [Recovering/Resolving]
  - Hypotension [Unknown]
  - Mastoiditis [Unknown]
  - Otitis media [Unknown]
  - Paranasal cyst [Unknown]
  - Stress [Unknown]
  - Vascular malformation [Unknown]
  - Tremor [Unknown]
  - Drug ineffective [Unknown]
  - Therapeutic response decreased [Unknown]
  - Product use in unapproved indication [Unknown]
  - Therapy partial responder [Unknown]

NARRATIVE: CASE EVENT DATE: 20180701
